FAERS Safety Report 17748062 (Version 4)
Quarter: 2020Q4

REPORT INFORMATION
  Report Type: Spontaneous
  Country: US (occurrence: US)
  Receive Date: 20200505
  Receipt Date: 20201202
  Transmission Date: 20210113
  Serious: Yes (Other)
  Sender: FDA-Public Use
  Company Number: US-GILEAD-2020-0463095

PATIENT
  Age: 51 Year
  Sex: Male

DRUGS (1)
  1. ATRIPLA [Suspect]
     Active Substance: EFAVIRENZ\EMTRICITABINE\TENOFOVIR DISOPROXIL FUMARATE
     Indication: HIV INFECTION
     Dosage: UNK
     Route: 048
     Dates: start: 200912, end: 20200210

REACTIONS (8)
  - Osteoporosis [Not Recovered/Not Resolved]
  - Osteonecrosis [Unknown]
  - Osteopenia [Unknown]
  - Bone density decreased [Unknown]
  - Osteomalacia [Unknown]
  - Bone loss [Unknown]
  - Tooth loss [Unknown]
  - Multiple fractures [Recovered/Resolved]

NARRATIVE: CASE EVENT DATE: 20160122
